FAERS Safety Report 8459089-5 (Version None)
Quarter: 2012Q2

REPORT INFORMATION
  Report Type: 
  Country: None (occurrence: None)
  Receive Date: 20120622
  Receipt Date: 20120622
  Transmission Date: 20120825
  Serious: Yes (Death)
  Sender: FDA-Public Use
  Company Number: US-PFIZER INC-2010US-37296

PATIENT
  Age: 71 Year
  Sex: Female

DRUGS (7)
  1. FAMOTIDINE [Concomitant]
     Dosage: UNK
  2. INSULIN [Concomitant]
     Dosage: UNK
  3. ATORVASTATIN [Suspect]
     Indication: PRODUCT USED FOR UNKNOWN INDICATION
     Dosage: 10 MG 1 IN 1 D
  4. ATORVASTATIN [Concomitant]
     Dosage: UNK
  5. VERAPAMIL HCL [Suspect]
     Indication: HYPERTENSION
     Dosage: 80 MG 3 IN ONE DAY
  6. ATORVASTATIN [Suspect]
     Dosage: 20 MG, 1 IN 1 D
  7. LISINOPRIL [Concomitant]
     Dosage: UNK

REACTIONS (13)
  - MULTI-ORGAN FAILURE [None]
  - MYALGIA [None]
  - CONFUSIONAL STATE [None]
  - ACUTE HEPATIC FAILURE [None]
  - VOMITING [None]
  - NAUSEA [None]
  - ASTHENIA [None]
  - DISSEMINATED INTRAVASCULAR COAGULATION [None]
  - RHABDOMYOLYSIS [None]
  - RENAL FAILURE ACUTE [None]
  - DRUG INTERACTION [None]
  - METABOLIC ACIDOSIS [None]
  - HAEMODIALYSIS [None]
